FAERS Safety Report 19876678 (Version 4)
Quarter: 2021Q4

REPORT INFORMATION
  Report Type: Spontaneous
  Country: DE (occurrence: DE)
  Receive Date: 20210923
  Receipt Date: 20211101
  Transmission Date: 20220303
  Serious: Yes (Other)
  Sender: FDA-Public Use
  Company Number: NVSC2021DE213416

PATIENT
  Age: 60 Year
  Sex: Female

DRUGS (6)
  1. ALENDRONATE SODIUM [Suspect]
     Active Substance: ALENDRONATE SODIUM
     Indication: Osteoporosis
     Dosage: UNK
     Route: 048
  2. ALENDRONATE SODIUM [Suspect]
     Active Substance: ALENDRONATE SODIUM
     Indication: Rheumatic disorder
  3. ZOLEDRONIC ACID [Suspect]
     Active Substance: ZOLEDRONIC ACID
     Indication: Rheumatic disorder
     Dosage: UNK
     Route: 042
  4. ZOLEDRONIC ACID [Suspect]
     Active Substance: ZOLEDRONIC ACID
     Indication: Osteoporosis
  5. DENOSUMAB [Suspect]
     Active Substance: DENOSUMAB
     Indication: Rheumatic disorder
     Dosage: UNK, ADMINISTERED ONCE
     Route: 058
  6. DENOSUMAB [Suspect]
     Active Substance: DENOSUMAB
     Indication: Osteoporosis

REACTIONS (1)
  - Osteonecrosis of jaw [Unknown]
